FAERS Safety Report 4990687-7 (Version None)
Quarter: 2006Q2

REPORT INFORMATION
  Report Type: 
  Country: None (occurrence: None)
  Receive Date: 20060427
  Receipt Date: 20060418
  Transmission Date: 20061013
  Serious: Yes (Other)
  Sender: FDA-Public Use
  Company Number: 224206

PATIENT
  Age: 53 Year
  Sex: Male

DRUGS (1)
  1. RAPTIVA [Suspect]
     Indication: PSORIASIS
     Dosage: 1.1 ML, 1/WEEK, SUBCUTANEOUS
     Route: 058

REACTIONS (1)
  - PROSTATE CANCER [None]
